FAERS Safety Report 21285199 (Version 2)
Quarter: 2022Q3

REPORT INFORMATION
  Report Type: Spontaneous
  Country: JP (occurrence: JP)
  Receive Date: 20220902
  Receipt Date: 20220907
  Transmission Date: 20221027
  Serious: Yes (Hospitalization, Other)
  Sender: FDA-Public Use
  Company Number: JP-TAKEDA-2022TJP072180

PATIENT
  Age: 2 Year

DRUGS (1)
  1. MIDAZOLAM HYDROCHLORIDE [Suspect]
     Active Substance: MIDAZOLAM HYDROCHLORIDE
     Indication: Status epilepticus
     Dosage: 5 MILLIGRAM, PRN
     Route: 050
     Dates: start: 20220831, end: 20220831

REACTIONS (1)
  - Respiratory depression [Recovered/Resolved]

NARRATIVE: CASE EVENT DATE: 20220831
